FAERS Safety Report 4381938-0 (Version None)
Quarter: 2004Q2

REPORT INFORMATION
  Report Type: 
  Country: None (occurrence: None)
  Receive Date: 20040615
  Receipt Date: 20040602
  Transmission Date: 20050107
  Serious: Yes (Hospitalization)
  Sender: FDA-Public Use
  Company Number: MK200406-0027-1

PATIENT
  Age: 54 Year
  Sex: Female

DRUGS (3)
  1. ANAFRANIL CAP [Suspect]
     Dosage: 25MG, DAILY
     Dates: start: 20030615, end: 20040423
  2. ACETAMINOPHEN [Concomitant]
  3. SELOKEN [Concomitant]

REACTIONS (6)
  - AMNESIA [None]
  - ASTHENIA [None]
  - EPILEPSY [None]
  - PARAESTHESIA [None]
  - PARTIAL SEIZURES [None]
  - RHABDOMYOLYSIS [None]
